FAERS Safety Report 9580046 (Version 2)
Quarter: 2013Q4

REPORT INFORMATION
  Report Type: Report from Study
  Country: US (occurrence: US)
  Receive Date: 20131002
  Receipt Date: 20131002
  Transmission Date: 20140711
  Serious: Yes (Hospitalization, Other)
  Sender: FDA-Public Use
  Company Number: US-ROCHE-1283261

PATIENT
  Age: 64 Year
  Sex: Female
  Weight: 85.81 kg

DRUGS (15)
  1. XOLAIR [Suspect]
     Indication: HYPERSENSITIVITY
     Dosage: INJECTIONS 150 MG IN EACH ARM
     Route: 065
     Dates: start: 2005
  2. XOPENEX [Concomitant]
     Indication: ASTHMA
     Dosage: MAYBE ONCE OR TWICE PER WEEK
     Route: 050
     Dates: start: 2005
  3. HUMULIN N [Concomitant]
     Indication: DIABETES MELLITUS
     Dosage: 30 UNITS IN THE MORNING AND AT NIGHT
     Route: 065
     Dates: start: 198508
  4. HUMULIN R [Concomitant]
     Indication: DIABETES MELLITUS
     Dosage: 25 UNITS IN THE MORNING AND IN THE EVENING
     Route: 050
     Dates: start: 198508
  5. SYNTHROID [Concomitant]
     Indication: HYPERTHYROIDISM
     Route: 048
     Dates: start: 2006
  6. PREMARIN [Concomitant]
     Indication: HYSTERECTOMY
     Route: 048
     Dates: start: 1995
  7. SINGULAIR [Concomitant]
     Indication: HYPERSENSITIVITY
     Route: 048
     Dates: start: 2005
  8. GABAPENTIN [Concomitant]
     Indication: NEUROPATHY PERIPHERAL
     Dosage: 3 TABLETS PER DAY
     Route: 048
     Dates: start: 2008
  9. XANAX [Concomitant]
     Route: 048
     Dates: start: 2008
  10. IBUPROFEN [Concomitant]
     Indication: BACK PAIN
     Dosage: TWO PILLS IN THE MORNING, TWO PILLS AT NIGHT
     Route: 048
     Dates: start: 2013
  11. CITALOPRAM [Concomitant]
     Indication: DEPRESSION
     Route: 048
     Dates: start: 2013
  12. FOLIC ACID [Concomitant]
     Route: 048
     Dates: start: 2013
  13. FISH OIL [Concomitant]
     Indication: BLOOD TRIGLYCERIDES INCREASED
     Route: 048
     Dates: start: 2013
  14. BIOTIN [Concomitant]
  15. ALTACE [Concomitant]

REACTIONS (4)
  - Surgery [Recovered/Resolved]
  - Surgery [Recovered/Resolved]
  - Pain in extremity [Not Recovered/Not Resolved]
  - Back pain [Not Recovered/Not Resolved]
